FAERS Safety Report 8974249 (Version 1)
Quarter: 2012Q4

REPORT INFORMATION
  Report Type: Spontaneous
  Country: JP (occurrence: None)
  Receive Date: 20121212
  Receipt Date: 20121212
  Transmission Date: 20130627
  Serious: Yes (Hospitalization)
  Sender: FDA-Public Use
  Company Number: 142841

PATIENT
  Age: 57 Year
  Sex: Male

DRUGS (1)
  1. LEUCOVORIN CALCIUM [Suspect]
     Indication: STAGE IV RECTAL ADENOCARCINOMA

REACTIONS (3)
  - Neuropathy peripheral [None]
  - Diarrhoea [None]
  - Vomiting [None]
